FAERS Safety Report 4904952-2 (Version None)
Quarter: 2006Q1

REPORT INFORMATION
  Report Type: 
  Country: None (occurrence: None)
  Receive Date: 20060208
  Receipt Date: 20051027
  Transmission Date: 20060701
  Serious: No
  Sender: FDA-Public Use
  Company Number: US-GLAXOSMITHKLINE-A0579900A

PATIENT
  Age: 35 Year
  Sex: Male

DRUGS (2)
  1. PAROXETINE HCL [Suspect]
     Route: 048
     Dates: start: 20040101, end: 20040101
  2. NO CONCURRENT MEDICATION [Concomitant]

REACTIONS (1)
  - DRUG INEFFECTIVE [None]
